FAERS Safety Report 5906862-0 (Version None)
Quarter: 2008Q3

REPORT INFORMATION
  Report Type: 
  Country: None (occurrence: None)
  Receive Date: 20080929
  Receipt Date: 20080915
  Transmission Date: 20090109
  Serious: Yes (Hospitalization)
  Sender: FDA-Public Use
  Company Number: 2008BI019829

PATIENT
  Age: 47 Year
  Sex: Female

DRUGS (2)
  1. AVONEX [Suspect]
     Indication: MULTIPLE SCLEROSIS
     Dosage: 30 UG;QW;IM
     Route: 030
     Dates: start: 20040101, end: 20060101
  2. BETASERON [Concomitant]

REACTIONS (4)
  - MALAISE [None]
  - PARALYSIS [None]
  - ROAD TRAFFIC ACCIDENT [None]
  - SPLENECTOMY [None]
